FAERS Safety Report 6140720-4 (Version None)
Quarter: 2009Q2

REPORT INFORMATION
  Report Type: 
  Country: None (occurrence: None)
  Receive Date: 20090402
  Receipt Date: 20090323
  Transmission Date: 20091009
  Serious: Yes (Hospitalization)
  Sender: FDA-Public Use
  Company Number: JP-BIOGENIDEC-2009BI009552

PATIENT
  Age: 37 Year
  Sex: Male

DRUGS (6)
  1. AVONEX [Suspect]
     Indication: SECONDARY PROGRESSIVE MULTIPLE SCLEROSIS
     Route: 030
     Dates: start: 20080319, end: 20080321
  2. ALLELOCK [Concomitant]
     Dates: start: 20080319
  3. GASTER D [Concomitant]
     Dates: start: 20080319, end: 20080322
  4. MAGLAX [Concomitant]
     Dates: start: 20080319
  5. CLONAZEPAM [Concomitant]
     Dates: start: 20080319
  6. PRIDOL [Concomitant]
     Dates: start: 20080319, end: 20080319

REACTIONS (3)
  - BLOOD CREATINE PHOSPHOKINASE INCREASED [None]
  - PARAPLEGIA [None]
  - PYREXIA [None]
